FAERS Safety Report 7820140-4 (Version None)
Quarter: 2011Q4

REPORT INFORMATION
  Report Type: 
  Country: None (occurrence: None)
  Receive Date: 20111018
  Receipt Date: 20111017
  Transmission Date: 20120403
  Serious: Yes (Other)
  Sender: FDA-Public Use
  Company Number: US-PFIZER INC-2011249096

PATIENT
  Sex: Female
  Weight: 117 kg

DRUGS (3)
  1. CHANTIX [Suspect]
     Dosage: 0.5 MG, DAILY
     Route: 048
     Dates: start: 20111017
  2. WARFARIN [Concomitant]
     Indication: COAGULOPATHY
     Dosage: 7.5 MG, DAILY
  3. CHANTIX [Suspect]
     Indication: SMOKING CESSATION THERAPY
     Dosage: 0.5 MG, DAILY
     Route: 048
     Dates: start: 20111010, end: 20111011

REACTIONS (2)
  - HYPERSENSITIVITY [None]
  - EYE SWELLING [None]
